FAERS Safety Report 9369942 (Version 1)
Quarter: 2013Q2

REPORT INFORMATION
  Report Type: Spontaneous
  Country: US (occurrence: US)
  Receive Date: 20130626
  Receipt Date: 20130626
  Transmission Date: 20140414
  Serious: No
  Sender: FDA-Public Use
  Company Number: US-MYLANLABS-2012S1019432

PATIENT
  Age: 64 Year
  Sex: Male
  Weight: 79.38 kg

DRUGS (5)
  1. OMEPRAZOLE DELAYED-RELEASE CAPSULES, USP [Suspect]
     Indication: GASTROOESOPHAGEAL REFLUX DISEASE
     Route: 048
     Dates: start: 201205, end: 201208
  2. LEVOTHYROXINE [Concomitant]
     Indication: THYROID DISORDER
     Route: 048
  3. ATENOLOL [Concomitant]
     Indication: BLOOD PRESSURE INCREASED
     Route: 048
  4. LOVASTATIN [Concomitant]
     Indication: BLOOD CHOLESTEROL INCREASED
     Route: 048
  5. VITAMIN D3 [Concomitant]
     Route: 048

REACTIONS (3)
  - Thyroid function test abnormal [Not Recovered/Not Resolved]
  - Anaemia [Not Recovered/Not Resolved]
  - Blood glucose increased [Recovered/Resolved]
